FAERS Safety Report 14969318 (Version 3)
Quarter: 2018Q4

REPORT INFORMATION
  Report Type: Report from Study
  Country: JP (occurrence: JP)
  Receive Date: 20180604
  Receipt Date: 20181219
  Transmission Date: 20190204
  Serious: Yes (Hospitalization)
  Sender: FDA-Public Use
  Company Number: JP-ACTELION-A-CH2016-134812

PATIENT
  Age: 53 Year
  Sex: Male

DRUGS (10)
  1. OPSUMIT [Suspect]
     Active Substance: MACITENTAN
     Indication: PULMONARY ARTERIAL HYPERTENSION
     Dosage: 10 MG, QD
     Route: 048
     Dates: start: 20151026
  2. ADCIRCA [Concomitant]
     Active Substance: TADALAFIL
  3. URINORM [Concomitant]
     Active Substance: BENZBROMARONE
  4. SEEBRI [Concomitant]
     Active Substance: GLYCOPYRROLATE
  5. OXYGEN. [Concomitant]
     Active Substance: OXYGEN
  6. TRICHLORMETHIAZIDE [Concomitant]
     Active Substance: TRICHLORMETHIAZIDE
  7. BEZATOL [Concomitant]
     Active Substance: BEZAFIBRATE
  8. BEZAFIBRATE [Concomitant]
     Active Substance: BEZAFIBRATE
  9. SYMBICORT [Concomitant]
     Active Substance: BUDESONIDE\FORMOTEROL FUMARATE DIHYDRATE
  10. LAC-B [Concomitant]
     Active Substance: BIFIDOBACTERIUM SPP.

REACTIONS (7)
  - Enterostomy [Recovered/Resolved]
  - Nasal congestion [Recovering/Resolving]
  - Oedema [Recovered/Resolved]
  - Inflammation [Recovered/Resolved]
  - Faeces soft [Recovered/Resolved]
  - Large intestinal stenosis [Recovered/Resolved]
  - Nasopharyngitis [Recovered/Resolved]

NARRATIVE: CASE EVENT DATE: 20151214
